FAERS Safety Report 7009392-0 (Version None)
Quarter: 2010Q3

REPORT INFORMATION
  Report Type: 
  Country: None (occurrence: None)
  Receive Date: 20100923
  Receipt Date: 20100913
  Transmission Date: 20110219
  Serious: Yes (Hospitalization)
  Sender: FDA-Public Use
  Company Number: DE-MPIJNJ-2010-04874

PATIENT

DRUGS (4)
  1. VELCADE [Suspect]
     Indication: MULTIPLE MYELOMA
     Dosage: 2.6 MG, UNK
     Route: 042
     Dates: start: 20100223, end: 20100830
  2. ALKERAN [Concomitant]
     Indication: MULTIPLE MYELOMA
     Dosage: 30 MG, UNK
     Route: 042
     Dates: start: 20100119, end: 20100119
  3. ALKERAN [Concomitant]
     Dosage: 18 MG, UNK
     Route: 048
     Dates: start: 20100223, end: 20100514
  4. PREDNISONE [Concomitant]
     Indication: MULTIPLE MYELOMA
     Dosage: 100 MG, UNK
     Route: 048
     Dates: start: 20100223, end: 20100822

REACTIONS (1)
  - HOSPITALISATION [None]
